FAERS Safety Report 17547455 (Version 1)
Quarter: 2020Q1

REPORT INFORMATION
  Report Type: Report from Study
  Country: None (occurrence: US)
  Receive Date: 20200317
  Receipt Date: 20200317
  Transmission Date: 20200409
  Serious: Yes (Hospitalization, Other)
  Sender: FDA-Public Use
  Company Number: US-ABBVIE-19K-163-3162200-00

PATIENT
  Age: 77 Year
  Sex: Male

DRUGS (2)
  1. IMBRUVICA [Suspect]
     Active Substance: IBRUTINIB
     Indication: CHRONIC LYMPHOCYTIC LEUKAEMIA
     Dosage: 140 MG, QD
     Route: 048
     Dates: start: 20190607
  2. IMBRUVICA [Suspect]
     Active Substance: IBRUTINIB
     Dosage: 140 MG, TID
     Route: 048
     Dates: start: 20170803, end: 20191003

REACTIONS (8)
  - Road traffic accident [Not Recovered/Not Resolved]
  - Incorrect dose administered [Unknown]
  - Craniocerebral injury [Unknown]
  - Inappropriate schedule of product administration [Unknown]
  - Rash [Not Recovered/Not Resolved]
  - Hip fracture [Unknown]
  - Fall [Unknown]
  - Depression [Not Recovered/Not Resolved]

NARRATIVE: CASE EVENT DATE: 20170803
